FAERS Safety Report 21782091 (Version 1)
Quarter: 2022Q4

REPORT INFORMATION
  Report Type: Spontaneous
  Country: RO (occurrence: RO)
  Receive Date: 20221227
  Receipt Date: 20221227
  Transmission Date: 20230112
  Serious: Yes (Hospitalization)
  Sender: FDA-Public Use
  Company Number: RO-SA-SAC20221220000095

PATIENT
  Age: 10 Year
  Sex: Female

DRUGS (9)
  1. DEXAMETHASONE [Suspect]
     Active Substance: DEXAMETHASONE
     Indication: Hypersensitivity
     Dosage: UNK
     Route: 065
     Dates: start: 2022
  2. HERBALS\VITAMINS [Suspect]
     Active Substance: HERBALS\VITAMINS
     Indication: Product used for unknown indication
     Dosage: UNK
     Route: 065
     Dates: start: 2022
  3. IBUPROFEN [Suspect]
     Active Substance: IBUPROFEN
     Indication: Nasopharyngitis
     Dosage: UNK
     Route: 065
     Dates: start: 202209
  4. IBUPROFEN [Suspect]
     Active Substance: IBUPROFEN
     Dosage: UNK
     Route: 065
     Dates: start: 202210
  5. DESLORATADINE\PSEUDOEPHEDRINE SULFATE [Concomitant]
     Active Substance: DESLORATADINE\PSEUDOEPHEDRINE SULFATE
     Indication: Product used for unknown indication
     Dosage: UNK
     Dates: start: 2022
  6. SOLU-MEDROL [Concomitant]
     Active Substance: METHYLPREDNISOLONE SODIUM SUCCINATE
     Indication: Product used for unknown indication
     Dosage: UNK
     Dates: start: 2022
  7. XYZAL [Concomitant]
     Active Substance: LEVOCETIRIZINE DIHYDROCHLORIDE
     Indication: Product used for unknown indication
     Dosage: UNK
     Dates: start: 2022
  8. WASP NEST [Concomitant]
     Indication: Product used for unknown indication
     Dosage: UNK
     Dates: start: 2022
  9. CELERG [CETIRIZINE HYDROCHLORIDE] [Concomitant]
     Indication: Product used for unknown indication

REACTIONS (7)
  - Blister [Unknown]
  - Allergy to venom [Unknown]
  - Anxiety [Unknown]
  - Swelling face [Unknown]
  - Swollen tongue [Unknown]
  - Swelling [Unknown]
  - Generalised oedema [Unknown]

NARRATIVE: CASE EVENT DATE: 20220101
